FAERS Safety Report 11104954 (Version 3)
Quarter: 2015Q3

REPORT INFORMATION
  Report Type: Spontaneous
  Country: US (occurrence: US)
  Receive Date: 20150511
  Receipt Date: 20150714
  Transmission Date: 20151125
  Serious: Yes (Hospitalization)
  Sender: FDA-Public Use
  Company Number: US-PFIZER INC-2015156419

PATIENT
  Age: 72 Year
  Sex: Female
  Weight: 45 kg

DRUGS (14)
  1. VFEND [Suspect]
     Active Substance: VORICONAZOLE
     Indication: LUNG INFECTION
     Dosage: 200 MG, 2X/DAY
     Route: 048
     Dates: start: 2014
  2. ADVAIR HFA [Concomitant]
     Active Substance: FLUTICASONE PROPIONATE\SALMETEROL XINAFOATE
     Indication: DYSPNOEA
     Dosage: UNK UNK, 2X/DAY
     Route: 048
  3. CALCIUM [Concomitant]
     Active Substance: CALCIUM
     Indication: MINERAL SUPPLEMENTATION
     Dosage: 500 MG, 1X/DAY
     Route: 048
  4. ILEVRO [Concomitant]
     Active Substance: NEPAFENAC
     Indication: CATARACT
     Dosage: ONE DROP IN THE MORNING IN BOTH EYES
     Route: 047
  5. LOTREL [Concomitant]
     Active Substance: AMLODIPINE BESYLATE\BENAZEPRIL HYDROCHLORIDE
     Indication: BLOOD PRESSURE ABNORMAL
     Dosage: 10 MG, 1X/DAY
     Route: 048
  6. VITAMIN B1 [Concomitant]
     Active Substance: THIAMINE HYDROCHLORIDE
     Indication: VITAMIN SUPPLEMENTATION
     Dosage: 100 MG, 1X/DAY
     Route: 048
  7. VITAMIN E [Concomitant]
     Active Substance: .ALPHA.-TOCOPHEROL
     Indication: VITAMIN E DEFICIENCY
     Dosage: 1 DF, 1X/DAY
     Route: 048
  8. OXYCONTIN [Suspect]
     Active Substance: OXYCODONE HYDROCHLORIDE
     Indication: PAIN
     Dosage: 20 MG, DAILY
     Route: 048
  9. DUREZOL [Concomitant]
     Active Substance: DIFLUPREDNATE
     Dosage: 1 GTT, 1X/DAY
     Route: 047
  10. VIGAMOX [Concomitant]
     Active Substance: MOXIFLOXACIN HYDROCHLORIDE
     Indication: CATARACT
     Dosage: 1 GTT, 3X/DAY
     Route: 047
  11. MAGNESIUM [Concomitant]
     Active Substance: MAGNESIUM
     Indication: MINERAL SUPPLEMENTATION
     Dosage: 64 MG, 1X/DAY
     Route: 048
  12. POTASSIUM [Concomitant]
     Active Substance: POTASSIUM
     Indication: VITAMIN SUPPLEMENTATION
     Dosage: 10 MG, 1X/DAY
     Route: 048
  13. OXYCODONE [Suspect]
     Active Substance: OXYCODONE
     Indication: ARTHRALGIA
     Dosage: 5 MG, EVERY 4-6 HOURS WHEN NEEDED
     Route: 048
  14. REFRESH EYE OINTMENT [Concomitant]
     Indication: VISION BLURRED
     Dosage: UNK, AS NEEDED
     Route: 047

REACTIONS (4)
  - Disorientation [Recovering/Resolving]
  - Overdose [Unknown]
  - Delusional perception [Recovering/Resolving]
  - Product name confusion [Unknown]

NARRATIVE: CASE EVENT DATE: 2014
